FAERS Safety Report 4551381-X (Version None)
Quarter: 2005Q1

REPORT INFORMATION
  Report Type: 
  Country: None (occurrence: None)
  Receive Date: 20050111
  Receipt Date: 20050111
  Transmission Date: 20050727
  Serious: Yes (Hospitalization)
  Sender: FDA-Public Use
  Company Number: None

PATIENT
  Sex: Male
  Weight: 114.1 kg

DRUGS (17)
  1. HEPARIN [Suspect]
     Indication: CORONARY ANGIOPLASTY
     Dates: start: 20041105, end: 20041105
  2. HEPARIN [Suspect]
     Indication: STENT PLACEMENT
     Dates: start: 20041105, end: 20041105
  3. WARFARIN     UNKNOWN [Suspect]
     Indication: CORONARY ANGIOPLASTY
     Dates: start: 20041105, end: 20041105
  4. WARFARIN     UNKNOWN [Suspect]
     Indication: STENT PLACEMENT
     Dates: start: 20041105, end: 20041105
  5. MECLIZINE [Concomitant]
  6. NITROGLYCERIN [Concomitant]
  7. NAPROXEN [Concomitant]
  8. IRON SULFATETHIAMIN COMPOUND TAB [Concomitant]
  9. CYCLOBENZAPRINE [Concomitant]
  10. ASPIRIN [Concomitant]
  11. VERAPAMIL [Concomitant]
  12. SERTRALINE HCL [Concomitant]
  13. METOPROLOL SUCCINATE [Concomitant]
  14. LORATADINE [Concomitant]
  15. BENADRYL [Concomitant]
  16. ATORVASTATIN [Concomitant]
  17. PLAVIX [Concomitant]

REACTIONS (3)
  - CATHETER SITE HAEMATOMA [None]
  - POST PROCEDURAL COMPLICATION [None]
  - THROMBOCYTOPENIA [None]
